FAERS Safety Report 17562132 (Version 4)
Quarter: 2021Q1

REPORT INFORMATION
  Report Type: Report from Study
  Country: US (occurrence: US)
  Receive Date: 20200319
  Receipt Date: 20210315
  Transmission Date: 20210419
  Serious: Yes (Death, Other)
  Sender: FDA-Public Use
  Company Number: NVSC2020US073302

PATIENT
  Age: 1 Year
  Sex: Female

DRUGS (3)
  1. CYCLOPHOSPHAMIDE. [Concomitant]
     Active Substance: CYCLOPHOSPHAMIDE
     Indication: CHEMOTHERAPY
     Dosage: UNK
     Route: 065
  2. FLUDARABINE [Concomitant]
     Active Substance: FLUDARABINE PHOSPHATE
     Indication: CHEMOTHERAPY
     Dosage: UNK
     Route: 065
  3. KYMRIAH [Suspect]
     Active Substance: TISAGENLECLEUCEL
     Indication: B-CELL TYPE ACUTE LEUKAEMIA
     Dosage: UNK UNK, ONCE/SINGLE (3.3E6 CAR?POSITIVE VIABLE T?CELLS/KG BODY WEIGHT)
     Route: 042
     Dates: start: 20190610

REACTIONS (11)
  - Pulmonary haemorrhage [Fatal]
  - Rhinovirus infection [Unknown]
  - White blood cell count decreased [Unknown]
  - B-lymphocyte count abnormal [Unknown]
  - Enterobacter infection [Unknown]
  - Lymphocyte count decreased [Unknown]
  - Platelet count decreased [Unknown]
  - Escherichia urinary tract infection [Unknown]
  - Neutrophil count decreased [Unknown]
  - Acute graft versus host disease [Unknown]
  - Acute lymphocytic leukaemia recurrent [Unknown]
